FAERS Safety Report 17202772 (Version 1)
Quarter: 2019Q4

REPORT INFORMATION
  Report Type: Spontaneous
  Country: US (occurrence: US)
  Receive Date: 20191226
  Receipt Date: 20191226
  Transmission Date: 20200122
  Serious: Yes (Other)
  Sender: FDA-Public Use
  Company Number: US-GILEAD-2019-0444175

PATIENT
  Age: 58 Year
  Sex: Female
  Weight: 65.76 kg

DRUGS (1)
  1. HARVONI [Suspect]
     Active Substance: LEDIPASVIR\SOFOSBUVIR
     Indication: HEPATITIS C
     Dosage: UNK
     Route: 065
     Dates: start: 20160513, end: 201606

REACTIONS (2)
  - Treatment failure [Not Recovered/Not Resolved]
  - Product use issue [Recovered/Resolved]
